FAERS Safety Report 5516030-2 (Version None)
Quarter: 2007Q4

REPORT INFORMATION
  Report Type: 
  Country: None (occurrence: None)
  Receive Date: 20071114
  Receipt Date: 20061117
  Transmission Date: 20080405
  Serious: No
  Sender: FDA-Public Use
  Company Number: A0627799A

PATIENT
  Age: 46 Year
  Sex: Female

DRUGS (2)
  1. COMMIT [Suspect]
     Indication: DRUG WITHDRAWAL MAINTENANCE THERAPY
  2. NICORETTE [Suspect]

REACTIONS (3)
  - CHEST DISCOMFORT [None]
  - DENTAL CARIES [None]
  - INTENTIONAL DRUG MISUSE [None]
